FAERS Safety Report 9353336 (Version 2)
Quarter: 2013Q2

REPORT INFORMATION
  Report Type: Spontaneous
  Country: VE (occurrence: VE)
  Receive Date: 20130618
  Receipt Date: 20130620
  Transmission Date: 20140414
  Serious: Yes (Death, Hospitalization, Other)
  Sender: FDA-Public Use
  Company Number: VE-PFIZER INC-2013182037

PATIENT
  Age: 72 Year
  Sex: Male

DRUGS (6)
  1. LIPITOR [Suspect]
     Indication: HYPERCHOLESTEROLAEMIA
     Dosage: 40 MG, 1X/DAY
     Route: 048
     Dates: start: 2003
  2. LIPITOR [Suspect]
     Indication: HYPERTRIGLYCERIDAEMIA
  3. REMINALET [Concomitant]
     Indication: HYPERTENSION
     Dosage: 20 MG, 1X/DAY
     Route: 048
     Dates: start: 2003
  4. BI-EUGLUCON [Concomitant]
     Indication: DIABETES MELLITUS
     Dosage: 1 DF (AT 5/500MG), 1X/DAY
     Route: 048
     Dates: start: 2003
  5. ADALAT OROS [Concomitant]
     Indication: HYPERTENSION
     Dosage: 30 MG, 1X/DAY
     Route: 048
     Dates: start: 2003
  6. JANUMET [Concomitant]
     Indication: DIABETES MELLITUS
     Dosage: 1 DF (AT 50/850 MG), 1X/DAY
     Route: 048
     Dates: start: 2007

REACTIONS (3)
  - Cardio-respiratory arrest [Fatal]
  - Intervertebral disc disorder [Not Recovered/Not Resolved]
  - Back pain [Not Recovered/Not Resolved]
